FAERS Safety Report 10701096 (Version 1)
Quarter: 2014Q4

REPORT INFORMATION
  Report Type: Spontaneous
  Country: US (occurrence: None)
  Receive Date: 20141229
  Receipt Date: 20141229
  Transmission Date: 20150529
  Serious: Yes (Life-Threatening, Hospitalization, Other)
  Sender: FDA-Public Use
  Company Number: 2014AP003901

PATIENT
  Age: 67 Year
  Sex: Male

DRUGS (7)
  1. ZIPRASIDONE HCL [Suspect]
     Active Substance: ZIPRASIDONE HYDROCHLORIDE
     Indication: HALLUCINATION
     Route: 048
  2. TRAMADOL HYDROCHLORIDE. [Suspect]
     Active Substance: TRAMADOL HYDROCHLORIDE
     Indication: ANALGESIC THERAPY
     Route: 048
  3. RASAGILINE MESYLATE [Suspect]
     Active Substance: RASAGILINE MESYLATE
     Indication: PRODUCT USED FOR UNKNOWN INDICATION
  4. DEPAKOTE [Concomitant]
     Active Substance: DIVALPROEX SODIUM
  5. CLOZAPINE (CLOZAPINE) [Concomitant]
     Active Substance: CLOZAPINE
  6. AMANTADINE (AMANTADINE) (AMANTADINE) [Concomitant]
     Active Substance: AMANTADINE
  7. LEVOOPA, CARBIDOPA (CARBIDOPA, LEVODOPA) [Concomitant]

REACTIONS (2)
  - Serotonin syndrome [None]
  - Drug interaction [None]
